FAERS Safety Report 21687453 (Version 3)
Quarter: 2023Q2

REPORT INFORMATION
  Report Type: Spontaneous
  Country: US (occurrence: US)
  Receive Date: 20221206
  Receipt Date: 20230619
  Transmission Date: 20230721
  Serious: No
  Sender: FDA-Public Use
  Company Number: US-PHARMING-PHAUS2022000826

PATIENT

DRUGS (4)
  1. RUCONEST [Suspect]
     Active Substance: HUMAN C1-ESTERASE INHIBITOR
     Indication: Hereditary angioedema
     Dosage: 4200 IU, ONCE WEEKLY
     Route: 042
     Dates: start: 20200630
  2. RUCONEST [Suspect]
     Active Substance: HUMAN C1-ESTERASE INHIBITOR
     Dosage: 4200 IU, ONCE WEEKLY
     Route: 042
     Dates: start: 20200630
  3. RUCONEST [Suspect]
     Active Substance: HUMAN C1-ESTERASE INHIBITOR
     Dosage: 4200 IU, ONCE WEEKLY
     Route: 042
     Dates: start: 20200630
  4. RUCONEST [Suspect]
     Active Substance: HUMAN C1-ESTERASE INHIBITOR
     Dosage: 4200 IU, ONCE WEEKLY
     Route: 042
     Dates: start: 20200629, end: 202305

REACTIONS (3)
  - Toothache [Unknown]
  - Weight fluctuation [Unknown]
  - Intentional product use issue [Unknown]
